FAERS Safety Report 9466149 (Version 3)
Quarter: 2013Q4

REPORT INFORMATION
  Report Type: Spontaneous
  Country: US (occurrence: US)
  Receive Date: 20130820
  Receipt Date: 20131120
  Transmission Date: 20140711
  Serious: Yes (Death, Hospitalization, Other)
  Sender: FDA-Public Use
  Company Number: US-B.I. PHARMACEUTICALS,INC./RIDGEFIELD-2013-BI-25618BP

PATIENT
  Age: 82 Year
  Sex: Male
  Weight: 65.77 kg

DRUGS (8)
  1. PRADAXA [Suspect]
     Indication: ATRIAL FIBRILLATION
     Dosage: 300 MG
     Route: 048
     Dates: start: 20110224, end: 20120131
  2. PRADAXA [Suspect]
     Indication: AORTIC VALVE REPLACEMENT
  3. TRANDOLAPRIL [Concomitant]
     Dosage: 2 MG
     Route: 048
     Dates: start: 1992, end: 20120204
  4. DIGOXIN [Concomitant]
     Dosage: 0.25 MG
     Route: 048
     Dates: start: 1992, end: 20120204
  5. METFORMIN [Concomitant]
     Dates: start: 2007, end: 20120204
  6. GLIPIZIDE [Concomitant]
     Dates: start: 2007, end: 20120204
  7. ALBUTEROL [Concomitant]
  8. OXYGEN [Concomitant]
     Indication: CHRONIC OBSTRUCTIVE PULMONARY DISEASE

REACTIONS (6)
  - Embolic stroke [Fatal]
  - Endocarditis staphylococcal [Fatal]
  - Gastrointestinal haemorrhage [Recovered/Resolved]
  - Anaemia [Unknown]
  - Pneumonia aspiration [Unknown]
  - Thrombocytopenia [Unknown]
